FAERS Safety Report 8552988-5 (Version None)
Quarter: 2012Q3

REPORT INFORMATION
  Report Type: 
  Country: None (occurrence: None)
  Receive Date: 20120731
  Receipt Date: 20120727
  Transmission Date: 20120928
  Serious: Yes (Death)
  Sender: FDA-Public Use
  Company Number: US-PFIZER INC-2012182603

PATIENT
  Sex: Female

DRUGS (14)
  1. OXYCONTIN [Concomitant]
     Dosage: UNK
  2. DOCUSATE [Concomitant]
     Dosage: UNK
  3. SIMVASTATIN [Concomitant]
     Dosage: UNK
  4. JANUVIA [Concomitant]
     Dosage: UNK
  5. ENOXAPARIN [Concomitant]
     Dosage: UNK
  6. ATENOLOL [Concomitant]
     Dosage: UNK
  7. METFORMIN [Concomitant]
     Dosage: UNK
  8. LISINOPRIL [Concomitant]
     Dosage: UNK
  9. DEXAMETHASONE [Concomitant]
     Dosage: UNK
  10. VERAPAMIL [Concomitant]
     Dosage: UNK
  11. XALKORI [Suspect]
     Indication: LUNG NEOPLASM MALIGNANT
  12. PERCOCET [Concomitant]
     Dosage: UNK
  13. NEXIUM [Concomitant]
     Dosage: UNK
  14. XALKORI [Suspect]
     Indication: BRONCHIAL NEOPLASM
     Dosage: 200 MG, 2X/DAY
     Route: 048
     Dates: start: 20120215

REACTIONS (1)
  - DEATH [None]
